FAERS Safety Report 11347196 (Version 1)
Quarter: 2015Q3

REPORT INFORMATION
  Report Type: Spontaneous
  Country: US (occurrence: US)
  Receive Date: 20150803
  Receipt Date: 20150803
  Transmission Date: 20151125
  Serious: Yes (Hospitalization)
  Sender: FDA-Public Use
  Company Number: US-ELI_LILLY_AND_COMPANY-US201104005857

PATIENT
  Sex: Male

DRUGS (10)
  1. VIRAMUNE [Concomitant]
     Active Substance: NEVIRAPINE
  2. MELATONIN [Concomitant]
     Active Substance: MELATONIN
  3. VIREAD [Concomitant]
     Active Substance: TENOFOVIR DISOPROXIL FUMARATE
  4. BENZTROPINE [Concomitant]
     Active Substance: BENZTROPINE
  5. NORVIR [Concomitant]
     Active Substance: RITONAVIR
  6. ZYPREXA [Suspect]
     Active Substance: OLANZAPINE
     Indication: BIPOLAR DISORDER
     Dosage: UNK, UNKNOWN
     Route: 048
     Dates: start: 2010
  7. ISENTRESS [Concomitant]
     Active Substance: RALTEGRAVIR POTASSIUM
  8. APTIVUS [Concomitant]
     Active Substance: TIPRANAVIR
  9. RISPERDAL CONSTA [Concomitant]
     Active Substance: RISPERIDONE
  10. BUSPAR [Concomitant]
     Active Substance: BUSPIRONE HYDROCHLORIDE

REACTIONS (3)
  - Psychotic disorder [Unknown]
  - Mania [Unknown]
  - Drug effect incomplete [Unknown]
